FAERS Safety Report 18563538 (Version 1)
Quarter: 2020Q4

REPORT INFORMATION
  Report Type: Spontaneous
  Country: SI (occurrence: SI)
  Receive Date: 20201201
  Receipt Date: 20201201
  Transmission Date: 20210114
  Serious: Yes (Other)
  Sender: FDA-Public Use
  Company Number: SI-TEVA-2020-SI-1853538

PATIENT
  Age: 74 Year
  Sex: Female

DRUGS (3)
  1. SUMAMED 500 MG [Suspect]
     Active Substance: AZITHROMYCIN
     Indication: CHEST DISCOMFORT
  2. FOSTER [Concomitant]
     Active Substance: BECLOMETHASONE\FORMOTEROL
     Route: 055
  3. SUMAMED 500 MG [Suspect]
     Active Substance: AZITHROMYCIN
     Indication: MALAISE
     Dosage: 500 MG
     Route: 048
     Dates: start: 20201104

REACTIONS (1)
  - Blindness [Recovered/Resolved]

NARRATIVE: CASE EVENT DATE: 20201104
